FAERS Safety Report 20480029 (Version 2)
Quarter: 2022Q1

REPORT INFORMATION
  Report Type: Spontaneous
  Country: RU (occurrence: RU)
  Receive Date: 20220216
  Receipt Date: 20220224
  Transmission Date: 20220424
  Serious: Yes (Life-Threatening, Hospitalization, Other)
  Sender: FDA-Public Use
  Company Number: RU-SA-2022SA048788

PATIENT
  Age: 2 Year
  Sex: Female
  Weight: 10.2 kg

DRUGS (2)
  1. MYOZYME [Suspect]
     Active Substance: ALGLUCOSIDASE ALFA
     Indication: Glycogen storage disease type II
     Dosage: 20 MG/KG, QOW
     Route: 041
     Dates: start: 20200702, end: 20220211
  2. CARVEDILOL [Concomitant]
     Active Substance: CARVEDILOL
     Dosage: 4 MG, BID
     Route: 048
     Dates: start: 202112

REACTIONS (3)
  - Respiratory arrest [Recovered/Resolved]
  - Bronchospasm [Recovered/Resolved]
  - Apnoea [Recovered/Resolved]

NARRATIVE: CASE EVENT DATE: 20220211
